FAERS Safety Report 22174719 (Version 2)
Quarter: 2023Q2

REPORT INFORMATION
  Report Type: Spontaneous
  Country: BR (occurrence: BR)
  Receive Date: 20230405
  Receipt Date: 20230412
  Transmission Date: 20230722
  Serious: Yes (Hospitalization, Other)
  Sender: FDA-Public Use
  Company Number: BR-TAKEDA-2023TUS033915

PATIENT
  Sex: Female
  Weight: 63 kg

DRUGS (2)
  1. MESALAMINE [Suspect]
     Active Substance: MESALAMINE
     Indication: Colitis
     Dosage: UNK UNK, QD
     Route: 048
     Dates: start: 20230102, end: 20230304
  2. VITAMIN D [Concomitant]
     Active Substance: VITAMIN D NOS
     Dosage: UNK UNK, 1/WEEK
     Dates: start: 20230220, end: 20230304

REACTIONS (3)
  - Renal colic [Not Recovered/Not Resolved]
  - Nephrolithiasis [Recovered/Resolved]
  - Condition aggravated [Unknown]
